FAERS Safety Report 7650785-6 (Version None)
Quarter: 2011Q3

REPORT INFORMATION
  Report Type: 
  Country: None (occurrence: None)
  Receive Date: 20110802
  Receipt Date: 20110725
  Transmission Date: 20111222
  Serious: Yes (Hospitalization)
  Sender: FDA-Public Use
  Company Number: JP-MERCK-1107USA04003

PATIENT
  Age: 60 Year
  Sex: Male

DRUGS (11)
  1. AMARYL [Concomitant]
     Route: 065
     Dates: end: 20110101
  2. ERYTHROCIN LACTOBIONATE [Concomitant]
     Route: 065
  3. JANUVIA [Suspect]
     Indication: TYPE 2 DIABETES MELLITUS
     Route: 048
     Dates: end: 20110101
  4. PENTAMIDINE ISETHIONATE [Suspect]
     Indication: PNEUMOCYSTIS JIROVECI PNEUMONIA
     Route: 042
     Dates: start: 20110101, end: 20110101
  5. FLUTICASONE PROPIONATE [Concomitant]
     Route: 065
  6. GANCICLOVIR [Concomitant]
     Route: 065
     Dates: start: 20110101, end: 20110101
  7. PYRIDOXAL PHOSPHATE [Concomitant]
     Route: 065
  8. CLEANAL [Concomitant]
     Route: 065
  9. SULFAMETHOXAZOLE [Concomitant]
     Route: 065
     Dates: start: 20110101, end: 20110101
  10. ISONIAZID [Concomitant]
     Route: 065
  11. HOKUNALIN [Concomitant]
     Route: 065

REACTIONS (7)
  - ALTERED STATE OF CONSCIOUSNESS [None]
  - PNEUMOCYSTIS JIROVECI PNEUMONIA [None]
  - RENAL FAILURE ACUTE [None]
  - OPPORTUNISTIC INFECTION [None]
  - HYPERKALAEMIA [None]
  - HYPERGLYCAEMIA [None]
  - HYPOGLYCAEMIA [None]
